FAERS Safety Report 18610742 (Version 9)
Quarter: 2021Q4

REPORT INFORMATION
  Report Type: Spontaneous
  Country: US (occurrence: US)
  Receive Date: 20201214
  Receipt Date: 20211230
  Transmission Date: 20220303
  Serious: Yes (Disabling, Other)
  Sender: FDA-Public Use
  Company Number: US-PFIZER INC-2020490426

PATIENT
  Age: 58 Year
  Sex: Female

DRUGS (4)
  1. PRISTIQ EXTENDED-RELEASE [Suspect]
     Active Substance: DESVENLAFAXINE SUCCINATE
     Indication: Anxiety
     Dosage: 400 MG (4 TABLETS OF 100 MG), DAILY
     Route: 048
  2. PRISTIQ EXTENDED-RELEASE [Suspect]
     Active Substance: DESVENLAFAXINE SUCCINATE
     Indication: Depression
     Dosage: STARTED ON 25 MG
  3. PRISTIQ EXTENDED-RELEASE [Suspect]
     Active Substance: DESVENLAFAXINE SUCCINATE
     Dosage: WENT UP TO 50 MG
  4. PRISTIQ EXTENDED-RELEASE [Suspect]
     Active Substance: DESVENLAFAXINE SUCCINATE
     Dosage: 75 MG, 1X/DAY (25MG  TO BE TAKEN WITH 50 MG DOSE)

REACTIONS (10)
  - Crohn^s disease [Unknown]
  - Road traffic accident [Unknown]
  - Lymphoedema [Unknown]
  - Mobility decreased [Unknown]
  - Sleep disorder [Unknown]
  - Cognitive disorder [Unknown]
  - Stress [Unknown]
  - Off label use [Unknown]
  - Overdose [Unknown]
  - Quality of life decreased [Unknown]
